FAERS Safety Report 5110844-9 (Version None)
Quarter: 2006Q3

REPORT INFORMATION
  Report Type: 
  Country: None (occurrence: None)
  Receive Date: 20060919
  Receipt Date: 20060906
  Transmission Date: 20061208
  Serious: Yes (Other)
  Sender: FDA-Public Use
  Company Number: 2006109074

PATIENT
  Age: 71 Year
  Sex: Female
  Weight: 90.7194 kg

DRUGS (15)
  1. LYRICA [Suspect]
     Indication: NEUROPATHY
     Dosage: 300 MG (100 MG, 3 IN 1 D)
     Dates: start: 20060101
  2. VITAMIN B12 [Concomitant]
  3. WELLBUTRIN [Concomitant]
  4. SYNTHROID [Concomitant]
  5. ACTOS [Concomitant]
  6. ISOSORBIDE (ISOSORBIDE) [Concomitant]
  7. BENAZEPRIL (BENAZEPRIL) [Concomitant]
  8. GLIPIZIDE [Concomitant]
  9. SULAR [Concomitant]
  10. METOPROLOL (METOPROLOL) [Concomitant]
  11. ASPIRIN [Concomitant]
  12. MULTIVITAMIN [Concomitant]
  13. AMITRIPTYLINE HCL [Concomitant]
  14. CALCIUM WITH VITAMN D (CALCIUM PHOSPHATE, CALCIUM SODIUM LACTATE, ERGO [Concomitant]
  15. IBUPROFEN [Concomitant]

REACTIONS (7)
  - ARTIFICIAL CROWN PROCEDURE [None]
  - ENDODONTIC PROCEDURE [None]
  - HAIR TEXTURE ABNORMAL [None]
  - OEDEMA PERIPHERAL [None]
  - POST PROCEDURAL OEDEMA [None]
  - PROCEDURAL PAIN [None]
  - TOOTH INJURY [None]
